FAERS Safety Report 4503054-7 (Version None)
Quarter: 2004Q4

REPORT INFORMATION
  Report Type: 
  Country: None (occurrence: None)
  Receive Date: 20041116
  Receipt Date: 20041116
  Transmission Date: 20050328
  Serious: No
  Sender: FDA-Public Use
  Company Number: None

PATIENT
  Sex: Female
  Weight: 52.6173 kg

DRUGS (2)
  1. CYMBALTA [Suspect]
     Dosage: 30 QD ORAL
     Route: 048
     Dates: start: 20041021, end: 20041022
  2. CYMBALTA [Suspect]
     Dosage: 60 QD ORAL
     Route: 048
     Dates: start: 20041023, end: 20041024

REACTIONS (2)
  - NAUSEA [None]
  - VOMITING [None]
